FAERS Safety Report 5268831-6 (Version None)
Quarter: 2007Q1

REPORT INFORMATION
  Report Type: 
  Country: None (occurrence: None)
  Receive Date: 20061213
  Receipt Date: 20050321
  Transmission Date: 20070707
  Serious: Yes (Hospitalization)
  Sender: FDA-Public Use
  Company Number: 2004UW12854

PATIENT
  Age: 77 Year
  Sex: Female
  Weight: 39.9165 kg

DRUGS (10)
  1. IRESSA [Suspect]
     Indication: NON-SMALL CELL LUNG CANCER STAGE IV
     Dosage: 250 MD DAILY PO
     Route: 048
     Dates: start: 20010508
  2. SYNTHROID [Concomitant]
  3. PROCARDIA [Concomitant]
  4. TOPROL-XL [Concomitant]
  5. CELEXA [Concomitant]
  6. HYDROCHLOROTHIAZIDE [Concomitant]
  7. ASPIRIN [Concomitant]
  8. PREMARIN [Concomitant]
  9. PEPCID [Concomitant]
  10. MEGESTROL ACETATE [Concomitant]

REACTIONS (7)
  - ALOPECIA [None]
  - DIARRHOEA [None]
  - DRY SKIN [None]
  - DYSPNOEA [None]
  - FATIGUE [None]
  - PAIN IN EXTREMITY [None]
  - STOMATITIS [None]
